FAERS Safety Report 13355811 (Version 1)
Quarter: 2017Q1

REPORT INFORMATION
  Report Type: Spontaneous
  Country: GB (occurrence: GB)
  Receive Date: 20170321
  Receipt Date: 20170321
  Transmission Date: 20170429
  Serious: Yes (Other)
  Sender: FDA-Public Use
  Company Number: GB-JNJFOC-20170312374

PATIENT
  Age: 83 Year
  Sex: Female
  Weight: 75 kg

DRUGS (6)
  1. OMEPRAZOLE. [Concomitant]
     Active Substance: OMEPRAZOLE
     Indication: PRODUCT USED FOR UNKNOWN INDICATION
     Dosage: DOSE: 2 (UNIT UNSPECIFIED). CUMULATIVE DOSE : 246.083333 (UNIT UNSPECIFIED). WITH ARTHRITIS TABLET.
     Route: 065
     Dates: start: 20161028
  2. PARACETAMOL [Concomitant]
     Active Substance: ACETAMINOPHEN
     Indication: PRODUCT USED FOR UNKNOWN INDICATION
     Dosage: TAKE ONE-TWO FOUR TIMES A DAY, AS REQUIRED.
     Route: 065
     Dates: start: 20170117
  3. COCODAMOL [Suspect]
     Active Substance: ACETAMINOPHEN\CODEINE PHOSPHATE
     Indication: PRODUCT USED FOR UNKNOWN INDICATION
     Route: 065
     Dates: start: 20170228
  4. LOPERAMIDE [Concomitant]
     Active Substance: LOPERAMIDE
     Indication: PRODUCT USED FOR UNKNOWN INDICATION
     Dosage: 1-2 TO BE TAKEN
     Route: 065
     Dates: start: 20170117
  5. CINNARIZINE [Concomitant]
     Active Substance: CINNARIZINE
     Indication: PRODUCT USED FOR UNKNOWN INDICATION
     Dosage: DOSE: 2 (UNIT UNSPECIFIED).CUMULATIVE DOSE : 276.0 (UNIT UNSPECIFIED).
     Route: 065
     Dates: start: 20170113, end: 20170210
  6. FERROUS FUMARATE [Concomitant]
     Active Substance: FERROUS FUMARATE
     Indication: PRODUCT USED FOR UNKNOWN INDICATION
     Dosage: DOSE: 1 (UNIT UNSPECIFIED). CUMULATIVE DOSE : 78.0 (UNIT UNSPECIFIED)
     Route: 065
     Dates: start: 20170120, end: 20170217

REACTIONS (1)
  - Malaise [Unknown]

NARRATIVE: CASE EVENT DATE: 20170228
